FAERS Safety Report 18858238 (Version 1)
Quarter: 2021Q1

REPORT INFORMATION
  Report Type: Spontaneous
  Country: CN (occurrence: CN)
  Receive Date: 20210208
  Receipt Date: 20210208
  Transmission Date: 20210420
  Serious: Yes (Other)
  Sender: FDA-Public Use
  Company Number: CN-EPICPHARMA-CN-2021EPCLIT00099

PATIENT
  Age: 11 Year
  Sex: Female

DRUGS (2)
  1. LEUCOVORIN CALCIUM. [Suspect]
     Active Substance: LEUCOVORIN CALCIUM
     Indication: DRUG LEVEL INCREASED
  2. LEUCOVORIN CALCIUM. [Suspect]
     Active Substance: LEUCOVORIN CALCIUM
     Indication: TOXICITY TO VARIOUS AGENTS
     Route: 065

REACTIONS (1)
  - Drug ineffective [Unknown]
